FAERS Safety Report 9820953 (Version 4)
Quarter: 2014Q3

REPORT INFORMATION
  Report Type: Report from Study
  Country: US (occurrence: US)
  Receive Date: 20140116
  Receipt Date: 20140811
  Transmission Date: 20150326
  Serious: Yes (Other)
  Sender: FDA-Public Use
  Company Number: US-ACTELION-A-US2012-76865

PATIENT
  Age: 78 Year
  Sex: Female

DRUGS (3)
  1. TRACLEER [Suspect]
     Active Substance: BOSENTAN\BOSENTAN MONOHYDRATE
     Indication: PULMONARY ARTERIAL HYPERTENSION
     Dosage: 125 MG, BID
     Route: 048
     Dates: start: 201303
  2. LASIX [Concomitant]
     Active Substance: FUROSEMIDE
  3. TRACLEER [Suspect]
     Active Substance: BOSENTAN\BOSENTAN MONOHYDRATE
     Dosage: 62.5 MG, BID
     Route: 048
     Dates: start: 20130211, end: 201303

REACTIONS (12)
  - Malaise [Unknown]
  - Oedema [Unknown]
  - Dizziness [Not Recovered/Not Resolved]
  - Dyspnoea [Unknown]
  - Confusional state [Not Recovered/Not Resolved]
  - Oxygen consumption [Unknown]
  - Head discomfort [Unknown]
  - Productive cough [Unknown]
  - Asthenia [Not Recovered/Not Resolved]
  - Renal failure [Unknown]
  - Fluid retention [Not Recovered/Not Resolved]
  - Insomnia [Unknown]
